FAERS Safety Report 9466006 (Version 2)
Quarter: 2013Q3

REPORT INFORMATION
  Report Type: Spontaneous
  Country: CA (occurrence: CA)
  Receive Date: 20130820
  Receipt Date: 20130831
  Transmission Date: 20140515
  Serious: No
  Sender: FDA-Public Use
  Company Number: CA-AMGEN-CANSP2013057245

PATIENT
  Age: 69 Year
  Sex: Female

DRUGS (1)
  1. PROLIA [Suspect]
     Indication: OSTEOPOROSIS POSTMENOPAUSAL
     Dosage: UNK
     Route: 065
     Dates: start: 201307

REACTIONS (18)
  - Facial pain [Recovered/Resolved]
  - Local swelling [Recovered/Resolved]
  - Blood glucose fluctuation [Unknown]
  - Hypoglycaemia [Unknown]
  - Feeling hot [Unknown]
  - Hyperhidrosis [Unknown]
  - Dizziness [Unknown]
  - Irritability [Unknown]
  - Back pain [Unknown]
  - Arthralgia [Unknown]
  - Spinal disorder [Unknown]
  - Gait disturbance [Unknown]
  - Musculoskeletal stiffness [Unknown]
  - Asthma [Unknown]
  - Dyspnoea [Unknown]
  - Drug interaction [Unknown]
  - Erythema [Recovered/Resolved]
  - Pain in extremity [Unknown]
